FAERS Safety Report 9536823 (Version 2)
Quarter: 2013Q3

REPORT INFORMATION
  Report Type: Report from Study
  Country: ZW (occurrence: ZW)
  Receive Date: 20130919
  Receipt Date: 20130919
  Transmission Date: 20140515
  Serious: Yes (Death, Life-Threatening, Hospitalization)
  Sender: FDA-Public Use
  Company Number: ZW-ABBVIE-10P-190-0690517-00

PATIENT
  Age: 38 Year
  Sex: Female

DRUGS (4)
  1. ALUVIA TABLETS [Suspect]
     Indication: HIV INFECTION
     Route: 048
     Dates: start: 20100831, end: 20110704
  2. RALTEGRAVIR [Concomitant]
     Indication: HIV INFECTION
     Dates: start: 20100831, end: 20110704
  3. COTRIMOXAZOLE [Concomitant]
     Indication: PRODUCT USED FOR UNKNOWN INDICATION
     Dates: start: 20060601, end: 20110704
  4. STALANEV [Concomitant]
     Indication: HIV INFECTION
     Dates: start: 2006

REACTIONS (9)
  - Hepatic failure [Fatal]
  - Disseminated tuberculosis [Recovered/Resolved]
  - Diarrhoea [Not Recovered/Not Resolved]
  - Weight decreased [Not Recovered/Not Resolved]
  - Night sweats [Not Recovered/Not Resolved]
  - Pharyngitis [Recovered/Resolved]
  - Herpes dermatitis [Recovered/Resolved]
  - Acute sinusitis [Recovered/Resolved]
  - Gastroenteritis [Recovered/Resolved]
